FAERS Safety Report 7844815-6 (Version None)
Quarter: 2011Q4

REPORT INFORMATION
  Report Type: 
  Country: None (occurrence: None)
  Receive Date: 20111025
  Receipt Date: 20111017
  Transmission Date: 20120403
  Serious: Yes (Other)
  Sender: FDA-Public Use
  Company Number: US-GLAXOSMITHKLINE-A0949356A

PATIENT
  Age: 73 Year
  Sex: Female

DRUGS (4)
  1. FENOFIBRATE [Concomitant]
  2. ADVAIR DISKUS 100/50 [Suspect]
     Indication: ASTHMA
     Dosage: 1PUFF PER DAY
     Route: 055
     Dates: start: 20110930, end: 20111003
  3. LOTREL [Concomitant]
  4. PREMARIN [Concomitant]

REACTIONS (8)
  - EPISTAXIS [None]
  - FEELING HOT [None]
  - FALL [None]
  - URTICARIA [None]
  - FIBULA FRACTURE [None]
  - RASH [None]
  - LOSS OF CONSCIOUSNESS [None]
  - ERYTHEMA [None]
